FAERS Safety Report 17831097 (Version 1)
Quarter: 2020Q2

REPORT INFORMATION
  Report Type: Report from Study
  Country: NL (occurrence: NL)
  Receive Date: 20200527
  Receipt Date: 20200527
  Transmission Date: 20200714
  Serious: Yes (Hospitalization, Other)
  Sender: FDA-Public Use
  Company Number: NL-BRISTOL-MYERS SQUIBB COMPANY-BMS-2020-027010

PATIENT
  Age: 57 Year
  Sex: Female
  Weight: 90.4 kg

DRUGS (5)
  1. NIVOLUMAB [Suspect]
     Active Substance: NIVOLUMAB
     Indication: CERVIX CARCINOMA
     Dosage: 92.6 MILLIGRAM
     Route: 042
     Dates: start: 20200212, end: 20200304
  2. MACROGOL [Concomitant]
     Active Substance: POLYETHYLENE GLYCOLS
     Indication: PRODUCT USED FOR UNKNOWN INDICATION
     Dosage: UNK
     Route: 065
     Dates: start: 20200131
  3. IPILIMUMAB [Suspect]
     Active Substance: IPILIMUMAB
     Indication: CERVIX CARCINOMA
     Dosage: 277.8 MILLIGRAM
     Route: 042
     Dates: start: 20200212, end: 20200304
  4. PREDNISONE. [Concomitant]
     Active Substance: PREDNISONE
     Indication: PRODUCT USED FOR UNKNOWN INDICATION
     Dosage: 2 MILLIGRAM/KILOGRAM
     Route: 048
     Dates: start: 20200327
  5. OXYCODON [Concomitant]
     Active Substance: OXYCODONE
     Indication: PRODUCT USED FOR UNKNOWN INDICATION
     Dosage: 40 MILLIGRAM
     Route: 065
     Dates: start: 20200114

REACTIONS (1)
  - Autoimmune cholangitis [Recovering/Resolving]

NARRATIVE: CASE EVENT DATE: 20200330
